FAERS Safety Report 9813687 (Version 8)
Quarter: 2015Q2

REPORT INFORMATION
  Report Type: Spontaneous
  Country: US (occurrence: US)
  Receive Date: 20140113
  Receipt Date: 20150511
  Transmission Date: 20150821
  Serious: Yes (Hospitalization, Other)
  Sender: FDA-Public Use
  Company Number: US-MERCK-1401USA000974

PATIENT
  Sex: Female
  Weight: 75.74 kg

DRUGS (5)
  1. FOSAMAX [Suspect]
     Active Substance: ALENDRONATE SODIUM
     Indication: OSTEOPOROSIS PROPHYLAXIS
     Dosage: 70 MG, WEEKLY
     Route: 048
     Dates: start: 200202, end: 20071201
  2. ALENDRONATE SODIUM. [Suspect]
     Active Substance: ALENDRONATE SODIUM
     Indication: OSTEOPOROSIS
     Dosage: 70 MG, WEEKLY
     Route: 048
     Dates: start: 20080619, end: 20110302
  3. ASCORBIC ACID. [Concomitant]
     Active Substance: ASCORBIC ACID
     Indication: PRODUCT USED FOR UNKNOWN INDICATION
     Dosage: 500 MG, DAILY
     Dates: start: 1970
  4. VITAMIN D [Concomitant]
     Active Substance: CHOLECALCIFEROL
     Indication: PRODUCT USED FOR UNKNOWN INDICATION
     Dosage: 1000 MG, BID
     Dates: start: 1970
  5. FOSAMAX [Suspect]
     Active Substance: ALENDRONATE SODIUM
     Indication: OSTEOPOROSIS

REACTIONS (40)
  - Aspiration joint [Unknown]
  - Knee arthroplasty [Unknown]
  - Urinary tract infection [Unknown]
  - Medial tibial stress syndrome [Unknown]
  - Pain in extremity [Unknown]
  - Femur fracture [Recovered/Resolved]
  - Intramedullary rod insertion [Recovered/Resolved]
  - Cerebrovascular accident [Unknown]
  - Cerebral haemorrhage [Unknown]
  - Polyp [Unknown]
  - Gastrooesophageal reflux disease [Unknown]
  - Seizure [Unknown]
  - Fall [Unknown]
  - Arthritis [Unknown]
  - Hypersensitivity [Unknown]
  - Angiopathy [Unknown]
  - Osteoarthritis [Unknown]
  - Hypertension [Unknown]
  - Adverse event [Unknown]
  - Embolic stroke [Recovering/Resolving]
  - Osteoarthritis [Unknown]
  - Somatoform disorder [Unknown]
  - Back pain [Unknown]
  - Myalgia [Unknown]
  - Hyperlipidaemia [Recovering/Resolving]
  - Coeliac disease [Unknown]
  - Joint effusion [Unknown]
  - Anaemia [Unknown]
  - Wound complication [Unknown]
  - Osteopenia [Unknown]
  - Osteoporosis [Unknown]
  - Packed red blood cell transfusion [Unknown]
  - Fall [Recovered/Resolved]
  - Hypertension [Unknown]
  - Amyloidosis [Unknown]
  - Femur fracture [Recovered/Resolved]
  - Intramedullary rod insertion [Unknown]
  - Implantable defibrillator insertion [Unknown]
  - Osteoarthritis [Unknown]
  - Shoulder operation [Unknown]

NARRATIVE: CASE EVENT DATE: 2004
